FAERS Safety Report 5738719-2 (Version None)
Quarter: 2008Q2

REPORT INFORMATION
  Report Type: 
  Country: None (occurrence: None)
  Receive Date: 20080515
  Receipt Date: 20080512
  Transmission Date: 20081010
  Serious: Yes (Life-Threatening, Hospitalization, Other)
  Sender: FDA-Public Use
  Company Number: PHBS2007BR16412

PATIENT
  Age: 65 Year
  Sex: Female
  Weight: 88 kg

DRUGS (11)
  1. XOLAIR [Suspect]
     Indication: ASTHMA
     Dosage: UNK, UNK
     Dates: start: 20061001
  2. BUTOVENT [Concomitant]
     Indication: ASTHMA
     Dosage: 1 DF, Q4H
  3. SINGULAIR [Concomitant]
     Dosage: 10 MG/DAY
  4. PREDSIM [Concomitant]
     Indication: ASTHMA
     Dosage: 20 MG AT 4 PM
  5. SODIUM CHLORIDE [Concomitant]
  6. ATROVENT [Concomitant]
     Dosage: 20 DRP/DAY
  7. BEROTEC [Concomitant]
     Dosage: UNK, PRN
  8. ALENDRONATE SODIUM [Concomitant]
     Dosage: 70 MG IN THE MORNING
  9. OS-CAL D [Concomitant]
     Indication: OSTEOPOROSIS
     Dosage: 1 DF, BID
  10. PANTOPRAZOLE SODIUM [Concomitant]
     Indication: REFLUX OESOPHAGITIS
     Dosage: 40 MG IN THE MORNING
  11. FORASEQ [Suspect]
     Indication: ASTHMA
     Dosage: 1 CAPFORMETEROL/2CAPS BUDES
     Dates: start: 20020101

REACTIONS (11)
  - AMNESIA [None]
  - ASTHMATIC CRISIS [None]
  - CARDIAC MASSAGE [None]
  - COMA [None]
  - LOSS OF CONSCIOUSNESS [None]
  - MECHANICAL VENTILATION [None]
  - NASOPHARYNGITIS [None]
  - RESPIRATORY ARREST [None]
  - RESPIRATORY FAILURE [None]
  - SLEEP DISORDER [None]
  - SYNCOPE [None]
